FAERS Safety Report 5554977-1 (Version None)
Quarter: 2007Q4

REPORT INFORMATION
  Report Type: 
  Country: None (occurrence: None)
  Receive Date: 20071213
  Receipt Date: 20071203
  Transmission Date: 20080405
  Serious: Yes (Other)
  Sender: FDA-Public Use
  Company Number: US-WYE-H01571107

PATIENT
  Age: 75 Year
  Sex: Female
  Weight: 65.83 kg

DRUGS (3)
  1. PREMARIN [Suspect]
     Indication: HOT FLUSH
     Route: 048
     Dates: start: 20071029, end: 20071130
  2. PREMARIN [Suspect]
     Indication: AFFECT LABILITY
     Route: 048
     Dates: start: 20070101, end: 20071001
  3. THYROID TAB [Concomitant]
     Indication: HYPOTHYROIDISM
     Route: 048
     Dates: start: 19870101

REACTIONS (4)
  - DRUG INEFFECTIVE [None]
  - LETHARGY [None]
  - MOOD ALTERED [None]
  - SUICIDAL IDEATION [None]
